FAERS Safety Report 10078951 (Version 1)
Quarter: 2014Q2

REPORT INFORMATION
  Report Type: Spontaneous
  Country: US (occurrence: US)
  Receive Date: 20140415
  Receipt Date: 20140415
  Transmission Date: 20141212
  Serious: Yes (Other)
  Sender: FDA-Public Use
  Company Number: US-ASTRAZENECA-2014SE24674

PATIENT
  Sex: Male

DRUGS (4)
  1. BRILINTA [Suspect]
     Indication: ISCHAEMIC HEART DISEASE PROPHYLAXIS
     Route: 048
     Dates: start: 2014, end: 2014
  2. BRILINTA [Suspect]
     Indication: PERCUTANEOUS CORONARY INTERVENTION
     Route: 048
     Dates: start: 2014, end: 2014
  3. ASPIRIN [Suspect]
     Indication: ADJUVANT THERAPY
     Route: 065
  4. COUMADIN [Suspect]
     Route: 065

REACTIONS (1)
  - Melaena [Recovered/Resolved]
